FAERS Safety Report 10430038 (Version 1)
Quarter: 2014Q3

REPORT INFORMATION
  Report Type: Spontaneous
  Country: US (occurrence: None)
  Receive Date: 20140902
  Receipt Date: 20140902
  Transmission Date: 20150326
  Serious: Yes (Death)
  Sender: FDA-Public Use
  Company Number: CIO14044384

PATIENT
  Age: 22 Month
  Sex: Male
  Weight: 13.6 kg

DRUGS (1)
  1. CREST PRO-HEALTH STAGES [Suspect]
     Active Substance: SODIUM FLUORIDE
     Dosage: APPROXIMATELY HALF TUBE OF TOOTHPASTE , 1 ONLY ORAL
     Route: 048

REACTIONS (6)
  - Convulsion [None]
  - Lethargy [None]
  - Exposure via ingestion [None]
  - Altered state of consciousness [None]
  - Accidental exposure to product by child [None]
  - Toxicity to various agents [None]
